FAERS Safety Report 7144489-6 (Version None)
Quarter: 2010Q4

REPORT INFORMATION
  Report Type: 
  Country: None (occurrence: None)
  Receive Date: 20101208
  Receipt Date: 20101107
  Transmission Date: 20110411
  Serious: No
  Sender: FDA-Public Use
  Company Number: US-BAYER-2010-001045

PATIENT
  Sex: Female
  Weight: 122 kg

DRUGS (1)
  1. ALEVE (CAPLET) [Suspect]
     Indication: DYSMENORRHOEA
     Dosage: 440 MG, BID
     Route: 048
     Dates: start: 20101107

REACTIONS (1)
  - NO ADVERSE EVENT [None]
